FAERS Safety Report 7710981-6 (Version None)
Quarter: 2011Q3

REPORT INFORMATION
  Report Type: 
  Country: None (occurrence: None)
  Receive Date: 20110825
  Receipt Date: 20110816
  Transmission Date: 20111222
  Serious: Yes (Hospitalization, Other)
  Sender: FDA-Public Use
  Company Number: US-ASTRAZENECA-2010SE60869

PATIENT
  Age: 64 Year
  Sex: Female
  Weight: 85 kg

DRUGS (20)
  1. VITAMIN D [Concomitant]
     Dosage: 5000 UNIT, TAKE 4 ORALLY EVERY MORNING
     Route: 048
  2. GABAPENTIN [Concomitant]
     Dosage: EVERY EVENING
     Route: 048
  3. TRICOR [Concomitant]
     Route: 048
  4. IBUPROFEN [Concomitant]
     Dosage: 1 TABLET EVERY 6 HOURS AS NEEDED WITH FOOD
     Route: 048
  5. ZOCOR [Concomitant]
     Dosage: EVERY EVENING
     Route: 048
  6. LOVAZA [Concomitant]
     Route: 048
  7. ASCORBIC ACID [Concomitant]
     Route: 048
  8. NOVOLOG [Concomitant]
     Dosage: AS PER INSULIN SLIDING SCALE PROTOCOL
     Route: 058
  9. AMITRIPTYLINE HCL [Concomitant]
     Route: 048
  10. NEXIUM [Suspect]
     Route: 048
     Dates: start: 20101101
  11. COREG [Concomitant]
     Dosage: WITH FOOD
     Route: 048
  12. PLAVIX [Concomitant]
     Route: 048
  13. ASPIRIN [Concomitant]
     Route: 048
  14. ASPIRIN [Concomitant]
     Route: 048
  15. LANTUS [Concomitant]
     Dosage: AS PER INSULIN RPOTOCOL
     Route: 058
  16. ZOCOR [Concomitant]
     Route: 048
  17. COREG [Concomitant]
     Dosage: WITH FOOD
     Route: 048
  18. FISH OIL [Concomitant]
     Dosage: 1200-144 MILLIGRAM
     Route: 048
  19. METFORMIN HCL [Concomitant]
     Dosage: WITH MORNING AND EVENING MEALS
     Route: 048
  20. AVALIDE [Concomitant]
     Dosage: 300 MILLIGRAM - 25 MILLIGRAM
     Route: 048

REACTIONS (7)
  - DYSPNOEA [None]
  - STENT PLACEMENT [None]
  - MYOCARDIAL INFARCTION [None]
  - CORONARY ARTERY BYPASS [None]
  - ANGINA PECTORIS [None]
  - CORONARY ARTERY DISEASE [None]
  - CHEST PAIN [None]
